FAERS Safety Report 5999430-6 (Version None)
Quarter: 2008Q4

REPORT INFORMATION
  Report Type: 
  Country: None (occurrence: None)
  Receive Date: 20081215
  Receipt Date: 20081204
  Transmission Date: 20090506
  Serious: Yes (Hospitalization)
  Sender: FDA-Public Use
  Company Number: FR-BAYER-200832148GPV

PATIENT
  Age: 44 Year
  Sex: Male

DRUGS (7)
  1. ACARBOSE [Suspect]
     Indication: DRUG USE FOR UNKNOWN INDICATION
     Dosage: TOTAL DAILY DOSE: 150 MG
     Route: 048
     Dates: start: 20080829, end: 20080927
  2. ACARBOSE [Suspect]
     Dosage: TOTAL DAILY DOSE: 150 MG
     Route: 048
     Dates: start: 20080930, end: 20081003
  3. METFORMIN (METFORMIN HYDROCHLORID) [Suspect]
     Indication: DRUG USE FOR UNKNOWN INDICATION
     Dosage: TOTAL DAILY DOSE: 2250 MG
     Route: 048
     Dates: start: 20080819, end: 20080927
  4. METFORMIN (METFORMIN HYDROCHLORID) [Suspect]
     Dosage: TOTAL DAILY DOSE: 2250 MG
     Route: 048
     Dates: start: 20080930, end: 20081003
  5. AMARYL [Suspect]
     Indication: DRUG USE FOR UNKNOWN INDICATION
     Route: 048
     Dates: start: 20080821, end: 20080927
  6. AMARYL [Suspect]
     Route: 048
     Dates: start: 20080930, end: 20081003
  7. ATACAND [Suspect]
     Indication: DRUG USE FOR UNKNOWN INDICATION
     Route: 048
     Dates: start: 20061201, end: 20080927

REACTIONS (2)
  - HEPATITIS CHOLESTATIC [None]
  - PYREXIA [None]
